FAERS Safety Report 6090414-9 (Version None)
Quarter: 2009Q1

REPORT INFORMATION
  Report Type: 
  Country: None (occurrence: None)
  Receive Date: 20090224
  Receipt Date: 20081218
  Transmission Date: 20090719
  Serious: No
  Sender: FDA-Public Use
  Company Number: US-ABBOTT-08P-163-0495341-00

PATIENT
  Sex: Male

DRUGS (3)
  1. SIMCOR [Suspect]
     Indication: LDL/HDL RATIO
     Dosage: 500MG/20MG AT HS
     Dates: start: 20081208
  2. UNKNOWN PILL [Concomitant]
     Indication: DIABETES MELLITUS
  3. UNKNOWN PILL [Concomitant]
     Indication: HYPERTENSION

REACTIONS (1)
  - ABDOMINAL DISCOMFORT [None]
